FAERS Safety Report 20523099 (Version 2)
Quarter: 2022Q1

REPORT INFORMATION
  Report Type: Report from Study
  Country: CO (occurrence: CO)
  Receive Date: 20220227
  Receipt Date: 20220323
  Transmission Date: 20220424
  Serious: Yes (Hospitalization)
  Sender: FDA-Public Use
  Company Number: CO-BAYER-2022A027833

PATIENT
  Age: 62 Year
  Sex: Female

DRUGS (7)
  1. VENTAVIS [Suspect]
     Active Substance: ILOPROST
     Indication: Pulmonary hypertension
     Dosage: UNK, Q4HR
     Route: 055
     Dates: start: 20180625
  2. BOSENTAN [Concomitant]
     Active Substance: BOSENTAN
  3. SILDENAFIL [Concomitant]
     Active Substance: SILDENAFIL
  4. ASPIRIN [Concomitant]
     Active Substance: ASPIRIN
  5. SPIRONOLACTONE [Concomitant]
     Active Substance: SPIRONOLACTONE
  6. FUROSEMIDE [Concomitant]
     Active Substance: FUROSEMIDE
  7. CARVEDILOL [Concomitant]
     Active Substance: CARVEDILOL

REACTIONS (5)
  - COVID-19 [Not Recovered/Not Resolved]
  - Dyspnoea [Not Recovered/Not Resolved]
  - Pain [Not Recovered/Not Resolved]
  - Cough [Not Recovered/Not Resolved]
  - Inappropriate schedule of product administration [Unknown]

NARRATIVE: CASE EVENT DATE: 20220101
